FAERS Safety Report 5830121-8 (Version None)
Quarter: 2008Q3

REPORT INFORMATION
  Report Type: 
  Country: None (occurrence: None)
  Receive Date: 20080801
  Receipt Date: 20080513
  Transmission Date: 20090109
  Serious: No
  Sender: FDA-Public Use
  Company Number: US-BAYER-200823220NA

PATIENT
  Age: 22 Year
  Sex: Female
  Weight: 57 kg

DRUGS (3)
  1. MIRENA [Suspect]
     Indication: CONTRACEPTION
     Route: 015
     Dates: start: 20071010
  2. XANAX [Concomitant]
  3. BITROLLITIS [Concomitant]

REACTIONS (7)
  - AMENORRHOEA [None]
  - DIZZINESS [None]
  - HEADACHE [None]
  - NAUSEA [None]
  - POST PROCEDURAL COMPLICATION [None]
  - RETCHING [None]
  - WEIGHT INCREASED [None]
